FAERS Safety Report 9559816 (Version 1)
Quarter: 2013Q3

REPORT INFORMATION
  Report Type: Spontaneous
  Country: CH (occurrence: CH)
  Receive Date: 20130927
  Receipt Date: 20130927
  Transmission Date: 20140515
  Serious: Yes (Hospitalization, Other)
  Sender: FDA-Public Use
  Company Number: CH-PAR PHARMACEUTICAL, INC.,-2013SCPR007686

PATIENT
  Sex: 0

DRUGS (1)
  1. DEXAMETHASONE [Suspect]
     Indication: ADRENOGENITAL SYNDROME
     Dosage: 1 MG, / DAY
     Route: 064

REACTIONS (9)
  - Encephalopathy [Recovering/Resolving]
  - Cerebral atrophy [Unknown]
  - Hyponatraemia [Recovered/Resolved]
  - Hypoglycaemia [Recovered/Resolved]
  - Pyrexia [Unknown]
  - Diarrhoea [Unknown]
  - Vomiting [Unknown]
  - Hyperkalaemia [Unknown]
  - Foetal exposure during pregnancy [Unknown]
